FAERS Safety Report 6858254-8 (Version None)
Quarter: 2010Q3

REPORT INFORMATION
  Report Type: 
  Country: None (occurrence: None)
  Receive Date: 20100719
  Receipt Date: 20080308
  Transmission Date: 20110219
  Serious: No
  Sender: FDA-Public Use
  Company Number: US-PFIZER INC-2008011830

PATIENT
  Sex: Female
  Weight: 61.2 kg

DRUGS (1)
  1. CHANTIX [Suspect]
     Indication: SMOKING CESSATION THERAPY
     Dates: start: 20071101

REACTIONS (3)
  - MEMORY IMPAIRMENT [None]
  - PANIC ATTACK [None]
  - TACHYPHRENIA [None]
